FAERS Safety Report 9464953 (Version 3)
Quarter: 2013Q4

REPORT INFORMATION
  Report Type: Spontaneous
  Country: IT (occurrence: IT)
  Receive Date: 20130819
  Receipt Date: 20131002
  Transmission Date: 20140711
  Serious: Yes (Other)
  Sender: FDA-Public Use
  Company Number: IT-009507513-1308ITA004764

PATIENT
  Age: 54 Year
  Sex: Male
  Weight: 77 kg

DRUGS (6)
  1. VICTRELIS [Suspect]
     Indication: CHRONIC HEPATITIS C
     Dosage: 2400 MG DAILY
     Route: 048
     Dates: start: 20130328, end: 20130510
  2. REBETOL [Suspect]
     Indication: CHRONIC HEPATITIS C
     Dosage: 1200 MG, UNK
     Route: 048
     Dates: start: 20130225, end: 20130324
  3. REBETOL [Suspect]
     Dosage: 800 UNK, UNK
     Route: 048
     Dates: start: 20130325
  4. PEGASYS [Suspect]
     Indication: CHRONIC HEPATITIS C
     Dosage: POWDER AND SOLVENT FOR INJECTION SOLUTION
     Route: 058
     Dates: start: 20130225
  5. METHADONE HYDROCHLORIDE [Concomitant]
     Indication: DRUG DEPENDENCE
     Dosage: 20 MG, QD
     Route: 048
     Dates: start: 20130101
  6. INDERAL [Concomitant]
     Indication: VARICES OESOPHAGEAL
     Dosage: 40 MG, UNK
     Route: 048
     Dates: start: 20120901

REACTIONS (3)
  - Leukopenia [Recovered/Resolved]
  - Thrombocytopenia [Recovered/Resolved]
  - Anaemia [Recovered/Resolved]
